FAERS Safety Report 8816274 (Version 1)
Quarter: 2012Q4

REPORT INFORMATION
  Report Type: Spontaneous
  Country: US (occurrence: None)
  Receive Date: 20120928
  Receipt Date: 20120928
  Transmission Date: 20130627
  Serious: Yes (Other)
  Sender: FDA-Public Use
  Company Number: None

PATIENT
  Age: 80 Year
  Sex: Male
  Weight: 104.33 kg

DRUGS (2)
  1. PRADAXA [Suspect]
     Indication: HEARTBEATS IRREGULAR
     Dosage: 150 mg daily
     Dates: start: 201201
  2. PRADAXA [Suspect]
     Indication: HEARTBEATS IRREGULAR
     Dates: start: 201202

REACTIONS (1)
  - Gastric haemorrhage [None]
